FAERS Safety Report 4747532-4 (Version None)
Quarter: 2005Q3

REPORT INFORMATION
  Report Type: 
  Country: None (occurrence: None)
  Receive Date: 20050816
  Receipt Date: 20050627
  Transmission Date: 20060218
  Serious: Yes (Death, Hospitalization)
  Sender: FDA-Public Use
  Company Number: ENTC2005-0174

PATIENT
  Age: 85 Year
  Sex: Male

DRUGS (8)
  1. STALEVO 100 [Suspect]
     Indication: PARKINSON'S DISEASE
     Dosage: 100/25/200 X 4 ORAL
     Route: 048
     Dates: start: 20050321, end: 20050524
  2. EXELON [Suspect]
     Dosage: ORAL
     Route: 048
  3. ANDROCUR [Suspect]
     Indication: PROSTATE CANCER
     Dosage: 300 MG (100 MG, 3 IN 1 D)  ORAL
     Route: 048
     Dates: start: 19950101, end: 20050519
  4. APROVEL [Concomitant]
  5. XATRAL-SLOW RELEASE [Concomitant]
  6. ELISOR [Concomitant]
  7. OMEPRAZOLE [Concomitant]
  8. SERETIDE [Concomitant]

REACTIONS (13)
  - ASCITES [None]
  - BLOOD ALBUMIN DECREASED [None]
  - BLOOD IRON DECREASED [None]
  - CHOLECYSTITIS [None]
  - CLOSTRIDIUM COLITIS [None]
  - GENERAL PHYSICAL HEALTH DETERIORATION [None]
  - HEPATITIS [None]
  - IRON BINDING CAPACITY TOTAL DECREASED [None]
  - PULMONARY EMBOLISM [None]
  - SERUM FERRITIN INCREASED [None]
  - SUBILEUS [None]
  - TRANSFERRIN DECREASED [None]
  - TRANSFERRIN SATURATION INCREASED [None]
